FAERS Safety Report 15485266 (Version 1)
Quarter: 2018Q4

REPORT INFORMATION
  Report Type: Spontaneous
  Country: US (occurrence: US)
  Receive Date: 20181010
  Receipt Date: 20181010
  Transmission Date: 20190205
  Serious: No
  Sender: FDA-Public Use
  Company Number: US-ROCHE-2193951

PATIENT
  Sex: Female

DRUGS (9)
  1. ALECENSA [Suspect]
     Active Substance: ALECTINIB HYDROCHLORIDE
     Indication: LUNG NEOPLASM MALIGNANT
     Route: 048
     Dates: start: 20180906
  2. NITROFURANTOIN MACROCRYSTALS [Concomitant]
     Active Substance: NITROFURANTOIN
  3. IRBESARTAN. [Concomitant]
     Active Substance: IRBESARTAN
  4. FLUOCINONIDE. [Concomitant]
     Active Substance: FLUOCINONIDE
  5. ESTRADIOL. [Concomitant]
     Active Substance: ESTRADIOL
  6. LORAZEPAM. [Concomitant]
     Active Substance: LORAZEPAM
  7. MIRALAX [Concomitant]
     Active Substance: POLYETHYLENE GLYCOL 3350
  8. LEVOTHYROXINE SODIUM. [Concomitant]
     Active Substance: LEVOTHYROXINE SODIUM
  9. KETOCONAZOLE. [Concomitant]
     Active Substance: KETOCONAZOLE

REACTIONS (3)
  - Peripheral swelling [Unknown]
  - Insomnia [Unknown]
  - Myalgia [Unknown]
